FAERS Safety Report 8387984-4 (Version None)
Quarter: 2012Q2

REPORT INFORMATION
  Report Type: 
  Country: None (occurrence: None)
  Receive Date: 20120525
  Receipt Date: 20120523
  Transmission Date: 20120825
  Serious: Yes (Death, Hospitalization, Other)
  Sender: FDA-Public Use
  Company Number: PHHY2012CH044175

PATIENT
  Age: 80 Year
  Sex: Male
  Weight: 60 kg

DRUGS (2)
  1. CLOZAPINE [Suspect]
     Indication: PSYCHOTIC DISORDER
     Dosage: 50 MG, QD
     Route: 048
     Dates: start: 20120301, end: 20120419
  2. ANTIBIOTICS [Concomitant]

REACTIONS (4)
  - AGRANULOCYTOSIS [None]
  - LUNG NEOPLASM [None]
  - PYREXIA [None]
  - PNEUMONIA [None]
